FAERS Safety Report 4852749-4 (Version None)
Quarter: 2005Q4

REPORT INFORMATION
  Report Type: 
  Country: None (occurrence: None)
  Receive Date: 20051125
  Receipt Date: 20050411
  Transmission Date: 20060501
  Serious: Yes (Other)
  Sender: FDA-Public Use
  Company Number: 2005058506

PATIENT
  Age: 47 Year
  Sex: Male
  Weight: 6.8584 kg

DRUGS (2)
  1. TIKOSYN [Suspect]
     Indication: ATRIAL FIBRILLATION
     Dosage: 1 MG (0.5 MG,TWICE DAILY),ORAL
     Route: 048
     Dates: start: 20050407
  2. OMEPRAZOLE [Concomitant]

REACTIONS (5)
  - ABNORMAL SENSATION IN EYE [None]
  - BACK PAIN [None]
  - DRUG INEFFECTIVE [None]
  - PYREXIA [None]
  - TACHYCARDIA [None]
